FAERS Safety Report 24755432 (Version 1)
Quarter: 2024Q4

REPORT INFORMATION
  Report Type: Spontaneous
  Country: RU (occurrence: RU)
  Receive Date: 20241219
  Receipt Date: 20241219
  Transmission Date: 20250114
  Serious: Yes (Life-Threatening)
  Sender: FRESENIUS KABI
  Company Number: RU-FreseniusKabi-FK202418715

PATIENT
  Age: 41 Year
  Sex: Male
  Weight: 64 kg

DRUGS (1)
  1. PROPOFOL [Suspect]
     Active Substance: PROPOFOL
     Indication: Premedication
     Dosage: DOSE: 100 MG?EMULSION FOR INTRAVENOUS?10 MG/ML?FREQUENCY: 1 TIME
     Route: 041
     Dates: start: 20240528, end: 20240528

REACTIONS (1)
  - Anaphylactic shock [Recovering/Resolving]

NARRATIVE: CASE EVENT DATE: 20240528
